FAERS Safety Report 5812047-9 (Version None)
Quarter: 2008Q3

REPORT INFORMATION
  Report Type: 
  Country: None (occurrence: None)
  Receive Date: 20080716
  Receipt Date: 20080711
  Transmission Date: 20090109
  Serious: Yes (Hospitalization, Other)
  Sender: FDA-Public Use
  Company Number: PHHY2008CA13034

PATIENT
  Sex: Male

DRUGS (3)
  1. CLOZARIL [Suspect]
     Dosage: UNK
     Route: 048
     Dates: start: 20080403
  2. CLOZARIL [Suspect]
     Dosage: 3500 MG, ONCE/SINGLE
     Dates: start: 20080702
  3. COCAINE [Concomitant]

REACTIONS (3)
  - INTENTIONAL OVERDOSE [None]
  - VOMITING [None]
  - WHITE BLOOD CELL COUNT [None]
